FAERS Safety Report 7833828-6 (Version None)
Quarter: 2011Q4

REPORT INFORMATION
  Report Type: 
  Country: None (occurrence: None)
  Receive Date: 20111024
  Receipt Date: 20111011
  Transmission Date: 20120403
  Serious: Yes (Other)
  Sender: FDA-Public Use
  Company Number: US-GLAXOSMITHKLINE-A0949605A

PATIENT
  Age: 59 Year
  Sex: Male

DRUGS (3)
  1. PROMACTA [Suspect]
     Indication: THROMBOCYTOPENIA
     Route: 048
     Dates: start: 20101025, end: 20101029
  2. CORTICOSTEROIDS [Concomitant]
     Indication: THROMBOCYTOPENIA
     Dates: start: 20100330
  3. MERCAPTOPURINE [Concomitant]
     Indication: CROHN'S DISEASE

REACTIONS (2)
  - EPISTAXIS [None]
  - PLATELET COUNT DECREASED [None]
